FAERS Safety Report 11051040 (Version 1)
Quarter: 2015Q2

REPORT INFORMATION
  Report Type: Spontaneous
  Country: US (occurrence: None)
  Receive Date: 20150417
  Receipt Date: 20150417
  Transmission Date: 20150821
  Serious: Yes (Other)
  Sender: FDA-Public Use
  Company Number: 114532

PATIENT
  Sex: Female

DRUGS (1)
  1. MENTHOL 5% [Suspect]
     Active Substance: MENTHOL
     Indication: PAIN
     Route: 061
     Dates: start: 20150329

REACTIONS (4)
  - Application site vesicles [None]
  - Application site burn [None]
  - Application site erythema [None]
  - Burns second degree [None]

NARRATIVE: CASE EVENT DATE: 20150329
